FAERS Safety Report 24745015 (Version 1)
Quarter: 2024Q4

REPORT INFORMATION
  Report Type: Spontaneous
  Country: US (occurrence: US)
  Receive Date: 20241217
  Receipt Date: 20241217
  Transmission Date: 20250114
  Serious: Yes (Other)
  Sender: PFIZER
  Company Number: US-PFIZER INC-202400324281

PATIENT
  Age: 25 Year
  Sex: Female

DRUGS (2)
  1. XELJANZ XR [Suspect]
     Active Substance: TOFACITINIB CITRATE
     Dosage: 11 MG , UP TO 1 TABLET PER DAY
  2. XELJANZ XR [Suspect]
     Active Substance: TOFACITINIB CITRATE
     Dosage: TAKE 1 TABLET(S) EVERY DAY BY ORAL ROUTE
     Route: 048

REACTIONS (2)
  - Colitis ulcerative [Unknown]
  - Off label use [Unknown]
